FAERS Safety Report 15892417 (Version 1)
Quarter: 2019Q1

REPORT INFORMATION
  Report Type: Spontaneous
  Country: FR (occurrence: FR)
  Receive Date: 20190130
  Receipt Date: 20190130
  Transmission Date: 20190417
  Serious: Yes (Hospitalization)
  Sender: FDA-Public Use
  Company Number: FR-EXELIXIS-CABO-18013918

PATIENT
  Age: 70 Year
  Sex: Male
  Weight: 69 kg

DRUGS (13)
  1. CARDENSIEL 2,5 MG, COMPRIM? PELLICUL? S?CABLE [Concomitant]
     Active Substance: BISOPROLOL FUMARATE
     Dosage: ()
  2. TAHOR [Concomitant]
     Active Substance: ATORVASTATIN CALCIUM
     Dosage: ()
  3. EUCREAS 50 MG/850 MG, COMPRIM? PELLICUL? [Concomitant]
     Dosage: ()
  4. DIAMICRON 60 MG, COMPRIM? S?CABLE ? LIB?RATION MODIFI?E [Concomitant]
     Active Substance: GLICLAZIDE
     Dosage: ()
  5. OMACOR [Concomitant]
     Active Substance: OMEGA-3-ACID ETHYL ESTERS
     Dosage: ()
  6. OXYNORMORO 10 MG, COMPRIM? ORODISPERSIBLE [Suspect]
     Active Substance: OXYCODONE HYDROCHLORIDE
     Indication: PAIN
     Dosage: 10MG/4H SI BESOIN ()
     Route: 048
  7. OXYCONTIN [Suspect]
     Active Substance: OXYCODONE HYDROCHLORIDE
     Indication: PAIN
     Route: 048
  8. KARDEGIC [Concomitant]
     Active Substance: ASPIRIN DL-LYSINE
     Dosage: ()
  9. RAMIPRIL. [Concomitant]
     Active Substance: RAMIPRIL
     Dosage: ()
  10. DIFFU K, G?LULE [Concomitant]
     Active Substance: POTASSIUM CHLORIDE
     Dosage: ()
  11. LIPANTHYL 145 MG, COMPRIM? PELLICUL? [Concomitant]
     Active Substance: FENOFIBRATE
     Dosage: ()
  12. CABOMETYX [Suspect]
     Active Substance: CABOZANTINIB S-MALATE
     Indication: METASTATIC RENAL CELL CARCINOMA
     Route: 048
     Dates: start: 201803, end: 20180403
  13. FUROSEMIDE. [Concomitant]
     Active Substance: FUROSEMIDE
     Dosage: ()

REACTIONS (3)
  - Constipation [Recovered/Resolved]
  - Abdominal pain [Recovered/Resolved]
  - Vomiting [Recovered/Resolved]

NARRATIVE: CASE EVENT DATE: 20180329
